FAERS Safety Report 8836289 (Version 2)
Quarter: 2013Q2

REPORT INFORMATION
  Report Type: Spontaneous
  Country: US (occurrence: US)
  Receive Date: 20121011
  Receipt Date: 20130422
  Transmission Date: 20140414
  Serious: Yes (Hospitalization, Other)
  Sender: FDA-Public Use
  Company Number: PHHY2012US088049

PATIENT
  Age: 65 Year
  Sex: Male

DRUGS (2)
  1. FLUOXETINE [Suspect]
     Dosage: 20 MG, QD
  2. DONEPEZIL [Interacting]
     Dosage: 10 MG, QHS

REACTIONS (11)
  - Cholinergic syndrome [Recovering/Resolving]
  - Agitation [Recovering/Resolving]
  - Faecal incontinence [Recovering/Resolving]
  - Abnormal behaviour [Recovering/Resolving]
  - Salivary hypersecretion [Recovering/Resolving]
  - Lacrimation increased [Recovering/Resolving]
  - Drooling [Recovering/Resolving]
  - Communication disorder [Recovering/Resolving]
  - Head titubation [Recovering/Resolving]
  - Diarrhoea [Recovering/Resolving]
  - Drug interaction [Unknown]
